FAERS Safety Report 4351294-2 (Version None)
Quarter: 2004Q2

REPORT INFORMATION
  Report Type: 
  Country: None (occurrence: None)
  Receive Date: 20040503
  Receipt Date: 20040422
  Transmission Date: 20050107
  Serious: Yes (Hospitalization)
  Sender: FDA-Public Use
  Company Number: US-BRISTOL-MYERS SQUIBB COMPANY-12567863

PATIENT
  Age: 76 Year
  Sex: Female

DRUGS (6)
  1. CARBOPLATIN [Suspect]
     Indication: OVARIAN CANCER
     Dosage: 1 TX DAY OFF-PROTOCOL
     Route: 042
     Dates: start: 20040223, end: 20040223
  2. PACLITAXEL [Suspect]
     Indication: OVARIAN CANCER
     Dosage: 1 DAY OF OFF-PROTOCOL TX
     Route: 042
     Dates: start: 20040223, end: 20040223
  3. INTERFERON GAMMA [Suspect]
     Indication: OVARIAN CANCER
     Route: 058
     Dates: start: 20031118, end: 20040127
  4. PRAVACHOL [Concomitant]
     Dates: start: 19990501
  5. PLAVIX [Concomitant]
     Dates: start: 20000101
  6. ZANTAC [Concomitant]
     Dates: start: 19990101

REACTIONS (1)
  - PYREXIA [None]
